FAERS Safety Report 23225474 (Version 1)
Quarter: 2023Q4

REPORT INFORMATION
  Report Type: Report from Study
  Country: ES (occurrence: ES)
  Receive Date: 20231124
  Receipt Date: 20231124
  Transmission Date: 20240110
  Serious: Yes (Hospitalization)
  Sender: FDA-Public Use
  Company Number: ES-KARYOPHARM-2023KPT002096

PATIENT
  Age: 57 Year
  Sex: Female

DRUGS (22)
  1. SELINEXOR [Suspect]
     Active Substance: SELINEXOR
     Indication: Plasma cell myeloma
     Dosage: 60 MG, WEEKLY
     Route: 048
     Dates: start: 20230628, end: 20230919
  2. SELINEXOR [Suspect]
     Active Substance: SELINEXOR
     Dosage: 40 MG, WEEKLY
     Route: 048
     Dates: start: 20230928
  3. POMALIDOMIDE [Suspect]
     Active Substance: POMALIDOMIDE
     Indication: Plasma cell myeloma
     Dosage: 4 MG, QD ON DAYS 1 TO 21 OF EACH 28-DAY CYCLE
     Route: 048
     Dates: start: 20230628
  4. POMALIDOMIDE [Suspect]
     Active Substance: POMALIDOMIDE
     Dosage: 4 MG, QD ON DAYS 1 TO 21 OF EACH 28-DAY CYCLE
     Route: 048
     Dates: start: 20230928
  5. POMALIDOMIDE [Suspect]
     Active Substance: POMALIDOMIDE
     Dosage: 4 MG, QD ON DAYS 1 TO 21 OF EACH 28-DAY CYCLE
     Route: 048
     Dates: start: 20231116
  6. DEXAMETHASONE [Suspect]
     Active Substance: DEXAMETHASONE
     Indication: Plasma cell myeloma
     Dosage: 40 MG, WEEKLY
     Route: 048
     Dates: start: 20230628
  7. DEXAMETHASONE [Suspect]
     Active Substance: DEXAMETHASONE
     Dosage: 20 MG
  8. OMEPRAZOLE [Concomitant]
     Active Substance: OMEPRAZOLE
     Indication: Prophylaxis
     Dosage: 40 MG, QD
     Route: 048
  9. ACYCLOVIR [Concomitant]
     Active Substance: ACYCLOVIR
     Indication: Infection prophylaxis
     Dosage: 800 MG, QD
     Route: 048
  10. CALCIUM CARBONATE [Concomitant]
     Active Substance: CALCIUM CARBONATE
     Indication: Prophylaxis
     Dosage: 1250 MG, QD
     Route: 048
  11. CHOLECALCIFEROL [Concomitant]
     Active Substance: CHOLECALCIFEROL
     Indication: Prophylaxis
     Dosage: 400 IU, QD
     Route: 048
  12. EBASTINE [Concomitant]
     Active Substance: EBASTINE
     Indication: Seasonal allergy
     Dosage: 20 MG, QD
     Route: 048
  13. KETOTIFEN [Concomitant]
     Active Substance: KETOTIFEN
     Indication: Seasonal allergy
     Dosage: 0.25 MG/ML, BID
     Route: 047
  14. FLUOROMETHOLONE [Concomitant]
     Active Substance: FLUOROMETHOLONE
     Indication: Blepharitis
     Dosage: 1 MG/ML, QD
     Route: 047
     Dates: start: 202305
  15. OLANZAPINE [Concomitant]
     Active Substance: OLANZAPINE
     Indication: Prophylaxis
     Dosage: 2.5 MG, QD
     Route: 048
     Dates: start: 20230626
  16. LACTULOSE [Concomitant]
     Active Substance: LACTULOSE
     Indication: Constipation
     Dosage: 10 G, QD
     Route: 048
     Dates: start: 20230726
  17. APREPITANT [Concomitant]
     Active Substance: APREPITANT
     Indication: Nausea
     Dosage: 125 MG, BEFORE SELINEXOR ON DAY 1 OF EACH CYCLE
     Route: 048
     Dates: start: 20230823
  18. APREPITANT [Concomitant]
     Active Substance: APREPITANT
     Dosage: 80 MG, BEFORE SELINEXOR ON DAY 2 AND DAY 3 OF EACH CYCLE
     Route: 048
     Dates: start: 20230823
  19. CEFDITOREN [Concomitant]
     Active Substance: CEFDITOREN
     Indication: Respiratory tract infection
     Dosage: UNK
     Dates: start: 20230922, end: 202309
  20. CEFDITOREN [Concomitant]
     Active Substance: CEFDITOREN
     Dosage: 400 MG, BID
     Route: 048
     Dates: start: 20231023, end: 20231028
  21. OSELTAMIVIR [Concomitant]
     Active Substance: OSELTAMIVIR
     Indication: Respiratory tract infection
     Dosage: 75 MG, BID
     Route: 048
     Dates: start: 20231023, end: 20231101
  22. FILGRASTIM [Concomitant]
     Active Substance: FILGRASTIM
     Indication: Neutropenia
     Dosage: 300 UG, QD
     Route: 058
     Dates: start: 20231103, end: 20231104

REACTIONS (1)
  - Pyrexia [Recovered/Resolved]

NARRATIVE: CASE EVENT DATE: 20231112
